FAERS Safety Report 13975613 (Version 1)
Quarter: 2017Q3

REPORT INFORMATION
  Report Type: Spontaneous
  Country: US (occurrence: US)
  Receive Date: 20170915
  Receipt Date: 20170915
  Transmission Date: 20171128
  Serious: Yes (Other)
  Sender: FDA-Public Use
  Company Number: US-BAYER-2017-170681

PATIENT
  Age: 44 Year
  Sex: Male

DRUGS (3)
  1. MAGNEVIST [Suspect]
     Active Substance: GADOPENTETATE DIMEGLUMINE
     Indication: NUCLEAR MAGNETIC RESONANCE IMAGING
     Dosage: UNK
     Route: 042
     Dates: start: 2008, end: 2008
  2. MAGNEVIST [Suspect]
     Active Substance: GADOPENTETATE DIMEGLUMINE
     Indication: NUCLEAR MAGNETIC RESONANCE IMAGING
     Dosage: UNK
     Route: 042
     Dates: start: 2006, end: 2006
  3. GADOLINIUM IN UNSPECIFIED DRUG [Suspect]
     Active Substance: GADOLINIUM
     Indication: NUCLEAR MAGNETIC RESONANCE IMAGING
     Dosage: UNK UNK, ONCE
     Route: 042
     Dates: start: 2007, end: 2007

REACTIONS (1)
  - Chronic kidney disease [None]

NARRATIVE: CASE EVENT DATE: 2010
